FAERS Safety Report 9329042 (Version 1)
Quarter: 2013Q2

REPORT INFORMATION
  Report Type: Spontaneous
  Country: US (occurrence: None)
  Receive Date: 20130531
  Receipt Date: 20130531
  Transmission Date: 20140414
  Serious: Yes (Hospitalization, Other)
  Sender: FDA-Public Use
  Company Number: 2013P1006256

PATIENT
  Age: 14 Year
  Sex: Female

DRUGS (2)
  1. BUPROPION [Suspect]
     Indication: BIPOLAR DISORDER
  2. LAMOTRIGINE [Suspect]
     Indication: BIPOLAR DISORDER

REACTIONS (19)
  - Drug reaction with eosinophilia and systemic symptoms [None]
  - Lymphadenopathy [None]
  - Pyrexia [None]
  - Rash [None]
  - Pharyngeal exudate [None]
  - Glossitis [None]
  - Transaminases increased [None]
  - Eosinophilia [None]
  - Renal failure acute [None]
  - Hepatitis [None]
  - Fluid overload [None]
  - Anaemia [None]
  - Pancreatitis [None]
  - Thyroiditis [None]
  - Tubulointerstitial nephritis [None]
  - Respiratory failure [None]
  - Cardiac arrest [None]
  - Torsade de pointes [None]
  - Hypothyroidism [None]
